FAERS Safety Report 7057369-1 (Version None)
Quarter: 2010Q4

REPORT INFORMATION
  Report Type: 
  Country: None (occurrence: None)
  Receive Date: 20101022
  Receipt Date: 20101018
  Transmission Date: 20110411
  Serious: Yes (Life-Threatening, Hospitalization, Disabling, Other)
  Sender: FDA-Public Use
  Company Number: US-ABBOTT-10P-163-0679009-00

PATIENT
  Sex: Male
  Weight: 79 kg

DRUGS (6)
  1. HUMIRA [Suspect]
     Indication: PSORIASIS
     Route: 058
     Dates: start: 20100418, end: 20100816
  2. LIPITOR [Concomitant]
     Indication: HYPERCHOLESTEROLAEMIA
     Dates: start: 20091117
  3. TERAZOSIN HCL [Concomitant]
     Indication: BENIGN PROSTATIC HYPERPLASIA
     Dates: start: 20060120
  4. BENAZEPRIL HYDROCHLORIDE [Concomitant]
     Indication: BENIGN PROSTATIC HYPERPLASIA
     Dates: start: 20060120
  5. FINASTERIDE [Concomitant]
     Indication: BENIGN PROSTATIC HYPERPLASIA
     Dates: start: 20090122
  6. CIALIS [Concomitant]
     Indication: ERECTILE DYSFUNCTION
     Dates: start: 20090609

REACTIONS (2)
  - HYPOXIA [None]
  - LUNG INFILTRATION [None]
